FAERS Safety Report 19108146 (Version 1)
Quarter: 2021Q2

REPORT INFORMATION
  Report Type: Spontaneous
  Country: US (occurrence: US)
  Receive Date: 20210408
  Receipt Date: 20210408
  Transmission Date: 20210717
  Serious: Yes (Other)
  Sender: FDA-Public Use
  Company Number: None

PATIENT
  Age: 35 Year

DRUGS (2)
  1. COLD AND FLU FORMULA (HERBALS) [Suspect]
     Active Substance: HERBALS
     Indication: INFLUENZA
  2. COLD AND FLU FORMULA (HERBALS) [Suspect]
     Active Substance: HERBALS
     Indication: NASOPHARYNGITIS

REACTIONS (1)
  - Hypersensitivity [None]
